FAERS Safety Report 5421896-0 (Version None)
Quarter: 2007Q3

REPORT INFORMATION
  Report Type: 
  Country: None (occurrence: None)
  Receive Date: 20070730
  Receipt Date: 20060922
  Transmission Date: 20080115
  Serious: Yes (Other)
  Sender: FDA-Public Use
  Company Number: 2006SP002585

PATIENT
  Sex: Male

DRUGS (3)
  1. RIBAVIRIN [Suspect]
     Indication: HEPATITIS C
     Dosage: PO
     Route: 048
  2. INTERFERON (MANUFACTURER UNKNOWN) [Suspect]
     Indication: HEPATITIS C
     Dosage: PO
     Route: 048
  3. PROCRIT [Suspect]
     Indication: ANAEMIA

REACTIONS (2)
  - APLASIA PURE RED CELL [None]
  - PANCYTOPENIA [None]
